FAERS Safety Report 5323313-8 (Version None)
Quarter: 2007Q2

REPORT INFORMATION
  Report Type: 
  Country: None (occurrence: None)
  Receive Date: 20070221
  Receipt Date: 20061012
  Transmission Date: 20071010
  Serious: Yes (Hospitalization)
  Sender: FDA-Public Use
  Company Number: BDI-008740

PATIENT
  Age: 75 Year
  Sex: Female

DRUGS (2)
  1. ISOVUE-370 [Suspect]
     Indication: COMPUTERISED TOMOGRAM
     Dosage: 150 ML ONCE IV
     Route: 042
     Dates: start: 20061011, end: 20061011
  2. ISOVUE-370 [Suspect]
     Indication: STENT PLACEMENT
     Dosage: 150 ML ONCE IV
     Route: 042
     Dates: start: 20061011, end: 20061011

REACTIONS (2)
  - DYSPNOEA [None]
  - MENTAL STATUS CHANGES [None]
